FAERS Safety Report 10451730 (Version 7)
Quarter: 2015Q1

REPORT INFORMATION
  Report Type: Spontaneous
  Country: CA (occurrence: CA)
  Receive Date: 20140915
  Receipt Date: 20150331
  Transmission Date: 20150720
  Serious: Yes (Hospitalization, Other)
  Sender: FDA-Public Use
  Company Number: CA-ROCHE-1006590

PATIENT
  Age: 80 Year
  Sex: Female

DRUGS (13)
  1. XOLAIR [Suspect]
     Active Substance: OMALIZUMAB
     Route: 058
     Dates: start: 20130722
  2. PREDNISONE. [Concomitant]
     Active Substance: PREDNISONE
  3. XOLAIR [Suspect]
     Active Substance: OMALIZUMAB
     Route: 058
     Dates: start: 20130819
  4. XOLAIR [Suspect]
     Active Substance: OMALIZUMAB
     Route: 058
     Dates: start: 20140428
  5. XOLAIR [Suspect]
     Active Substance: OMALIZUMAB
     Route: 058
     Dates: start: 20121113
  6. XOLAIR [Suspect]
     Active Substance: OMALIZUMAB
     Route: 058
     Dates: start: 20130107
  7. XOLAIR [Suspect]
     Active Substance: OMALIZUMAB
     Route: 058
     Dates: start: 20141014
  8. PANTOLOC [Concomitant]
     Active Substance: PANTOPRAZOLE SODIUM
  9. ADVAIR HFA [Concomitant]
     Active Substance: FLUTICASONE PROPIONATE\SALMETEROL XINAFOATE
  10. INFLUENZA VACCINE [Concomitant]
     Active Substance: INFLUENZA VIRUS VACCINE
     Route: 065
     Dates: start: 20121215
  11. XOLAIR [Suspect]
     Active Substance: OMALIZUMAB
     Indication: ASTHMA
     Route: 058
     Dates: start: 20100217
  12. VENTOLIN [Concomitant]
     Active Substance: ALBUTEROL SULFATE
  13. FOSAMAX [Concomitant]
     Active Substance: ALENDRONATE SODIUM

REACTIONS (20)
  - Asthma [Unknown]
  - Increased upper airway secretion [Unknown]
  - Lung disorder [Recovered/Resolved]
  - Pneumonia [Unknown]
  - Rhinorrhoea [Unknown]
  - Bronchitis [Recovering/Resolving]
  - Viral infection [Unknown]
  - Stress [Unknown]
  - Influenza [Recovered/Resolved]
  - Haemoptysis [Unknown]
  - Blood pressure systolic increased [Not Recovered/Not Resolved]
  - Malaise [Unknown]
  - Asthenia [Unknown]
  - Secretion discharge [Unknown]
  - Nasopharyngitis [Unknown]
  - Dizziness [Unknown]
  - Cardiac disorder [Unknown]
  - Anxiety [Unknown]
  - Osteoporosis [Unknown]
  - Diarrhoea [Unknown]

NARRATIVE: CASE EVENT DATE: 20111017
